FAERS Safety Report 5063790-3 (Version None)
Quarter: 2006Q3

REPORT INFORMATION
  Report Type: 
  Country: None (occurrence: None)
  Receive Date: 20060703
  Receipt Date: 20060418
  Transmission Date: 20061208
  Serious: No
  Sender: FDA-Public Use
  Company Number: 2006S1003748

PATIENT
  Age: 54 Year
  Sex: Male

DRUGS (5)
  1. CLOZAPINE [Suspect]
     Dosage: 300 MG; QD; PO
     Route: 048
  2. LEVOFLOXACIN [Concomitant]
  3. PRIMIDONE [Concomitant]
  4. GABAPENTIN [Concomitant]
  5. VALPROATE SODIUM [Concomitant]

REACTIONS (1)
  - GRANULOCYTOPENIA [None]
